FAERS Safety Report 6674186-2 (Version None)
Quarter: 2010Q2

REPORT INFORMATION
  Report Type: 
  Country: None (occurrence: None)
  Receive Date: 20100407
  Receipt Date: 20100323
  Transmission Date: 20101027
  Serious: Yes (Hospitalization)
  Sender: FDA-Public Use
  Company Number: DSJ-2010-04869

PATIENT
  Age: 68 Year
  Sex: Male

DRUGS (12)
  1. BENICAR [Suspect]
     Indication: HYPERTENSION
     Dosage: 20 MG (20 MG, 1 IN 1 D), PER ORAL
     Route: 048
     Dates: start: 20010101, end: 20100301
  2. PANTOPRAZOLE (PANTOPERAZOLE) (PANTOPRAZOLE) [Concomitant]
  3. INDAPAMIDE (INDAPAMIDE) (INDAPAMIDE) [Concomitant]
  4. TRIMETAZIDEINE (TRIMETAZIDINE) (TRIMETAZIDINE) [Concomitant]
  5. ATENOLOL [Concomitant]
  6. AMIODARONE HCL [Concomitant]
  7. INSULIN (INSULIN) (INSULIN) [Concomitant]
  8. METFORMIN HCL [Concomitant]
  9. ACETYLSALICYLIC ACID SRT [Concomitant]
  10. CLOPIDOGREL (CLOPIDOGEL) (CLOPIDOGREL) [Concomitant]
  11. ROSUVASTATIN (ROSUVASTATIN) (ROSUVASTATIN) [Concomitant]
  12. BEZAFIBRATE (BEZAFIBRATE) (BEZAFIBRATE) [Concomitant]

REACTIONS (3)
  - ANGINA PECTORIS [None]
  - ARTERIOSCLEROSIS [None]
  - BACK PAIN [None]
